FAERS Safety Report 9208332 (Version 2)
Quarter: 2013Q2

REPORT INFORMATION
  Report Type: Spontaneous
  Country: US (occurrence: US)
  Receive Date: 20130403
  Receipt Date: 20130520
  Transmission Date: 20140414
  Serious: No
  Sender: FDA-Public Use
  Company Number: US-009507513-1303USA013381

PATIENT
  Age: 75 Year
  Sex: Male

DRUGS (9)
  1. FOSAMAX [Suspect]
     Indication: OSTEOPOROSIS
     Dosage: 70 MG, QW
     Route: 048
     Dates: start: 200403, end: 201103
  2. FOSAMAX [Suspect]
     Indication: OSTEOPENIA
  3. CALCIUM (UNSPECIFIED) (+) VITAMIN D (UNSPECIFIED) [Concomitant]
  4. SYNTHROID [Concomitant]
  5. TRUSOPT [Concomitant]
  6. BRIMONIDINE TARTRATE [Concomitant]
  7. LATANOPROST [Concomitant]
  8. ASPIRINE [Concomitant]
     Dosage: HALF AN ASPIRINE
  9. ZOCOR [Concomitant]

REACTIONS (2)
  - Drug ineffective [Unknown]
  - Condition aggravated [Not Recovered/Not Resolved]
